FAERS Safety Report 4987402-X (Version None)
Quarter: 2006Q2

REPORT INFORMATION
  Report Type: 
  Country: None (occurrence: None)
  Receive Date: 20060427
  Receipt Date: 20060427
  Transmission Date: 20061013
  Serious: No
  Sender: FDA-Public Use
  Company Number: None

PATIENT
  Sex: Male
  Weight: 58.9676 kg

DRUGS (2)
  1. FENTANYL [Suspect]
     Indication: CHEMOTHERAPY
     Dosage: 50MCG/HR   3 DAYS  PATCH
     Dates: start: 20060201
  2. FENTANYL [Suspect]
     Indication: NEUROPATHY
     Dosage: 50MCG/HR   3 DAYS  PATCH
     Dates: start: 20060201

REACTIONS (3)
  - DRUG INEFFECTIVE [None]
  - PHARMACEUTICAL PRODUCT COMPLAINT [None]
  - THERAPEUTIC RESPONSE UNEXPECTED WITH DRUG SUBSTITUTION [None]
